FAERS Safety Report 7628226-4 (Version None)
Quarter: 2011Q3

REPORT INFORMATION
  Report Type: 
  Country: None (occurrence: None)
  Receive Date: 20110720
  Receipt Date: 20110720
  Transmission Date: 20111222
  Serious: Yes (Other)
  Sender: FDA-Public Use
  Company Number: None

PATIENT
  Sex: Male
  Weight: 61.2 kg

DRUGS (2)
  1. RISPERDAL [Suspect]
     Indication: CONVULSION
     Dosage: ONE BID P.O.  PRIOR TO 2009
     Route: 048
  2. RISPERDAL [Suspect]
     Indication: CEREBRAL PALSY
     Dosage: ONE BID P.O.  PRIOR TO 2009
     Route: 048

REACTIONS (2)
  - PRODUCT SUBSTITUTION ISSUE [None]
  - SOCIAL AVOIDANT BEHAVIOUR [None]
